FAERS Safety Report 5959642-4 (Version None)
Quarter: 2008Q4

REPORT INFORMATION
  Report Type: 
  Country: None (occurrence: None)
  Receive Date: 20081120
  Receipt Date: 20081111
  Transmission Date: 20090506
  Serious: Yes (Hospitalization, Other)
  Sender: FDA-Public Use
  Company Number: CO-ELI_LILLY_AND_COMPANY-CO200810002372

PATIENT
  Age: 80 Year
  Sex: Female

DRUGS (4)
  1. HUMALOG [Suspect]
     Indication: TYPE 1 DIABETES MELLITUS
  2. HUMALOG [Suspect]
     Dosage: 10 IU, EACH EVENING
     Route: 058
  3. VALSARTAN [Concomitant]
     Indication: HYPERTENSION
     Dosage: UNK, UNKNOWN
     Route: 065
  4. METFORMIN HCL [Concomitant]
     Indication: DIABETES MELLITUS
     Dosage: UNK, UNKNOWN
     Route: 065

REACTIONS (2)
  - HYPERTENSION [None]
  - HYPOGLYCAEMIA [None]
